FAERS Safety Report 16056341 (Version 2)
Quarter: 2019Q2

REPORT INFORMATION
  Report Type: Spontaneous
  Country: US (occurrence: US)
  Receive Date: 20190311
  Receipt Date: 20190411
  Transmission Date: 20190711
  Serious: No
  Sender: FDA-Public Use
  Company Number: US-LEO PHARMA-317169

PATIENT
  Sex: Male

DRUGS (2)
  1. PICATO [Suspect]
     Active Substance: INGENOL MEBUTATE
     Indication: ACTINIC KERATOSIS
     Route: 061
     Dates: start: 20190223, end: 20190225
  2. PICATO [Suspect]
     Active Substance: INGENOL MEBUTATE

REACTIONS (3)
  - Inappropriate schedule of product administration [Unknown]
  - Application site dryness [Recovered/Resolved]
  - Application site scab [Recovered/Resolved]
